FAERS Safety Report 4950750-3 (Version None)
Quarter: 2006Q1

REPORT INFORMATION
  Report Type: 
  Country: None (occurrence: None)
  Receive Date: 20060322
  Receipt Date: 20060314
  Transmission Date: 20060701
  Serious: Yes (Other)
  Sender: FDA-Public Use
  Company Number: GB-ROCHE-440914

PATIENT
  Age: 36 Year
  Sex: Female
  Weight: 97 kg

DRUGS (5)
  1. XENICAL [Suspect]
     Indication: OBESITY
     Route: 048
     Dates: start: 20060313, end: 20060314
  2. ASPIRIN [Concomitant]
     Route: 048
  3. MICRONOR [Concomitant]
     Indication: CONTRACEPTION
     Route: 048
  4. NOVORAPID [Concomitant]
     Route: 058
  5. LEVEMIR [Concomitant]
     Route: 058

REACTIONS (4)
  - ASTHENIA [None]
  - CONFUSIONAL STATE [None]
  - HYPERHIDROSIS [None]
  - PARAESTHESIA [None]
